FAERS Safety Report 6058816-4 (Version None)
Quarter: 2009Q1

REPORT INFORMATION
  Report Type: 
  Country: None (occurrence: None)
  Receive Date: 20090128
  Receipt Date: 20090128
  Transmission Date: 20090719
  Serious: Yes (Life-Threatening, Other)
  Sender: FDA-Public Use
  Company Number: None

PATIENT
  Age: 57 Year
  Sex: Male
  Weight: 64.8644 kg

DRUGS (1)
  1. ZOLPIDEM [Suspect]
     Indication: SLEEP DISORDER THERAPY
     Dosage: 5-10 MG AT BEDTIME PO
     Route: 048
     Dates: start: 20081203, end: 20081231

REACTIONS (8)
  - AMNESIA [None]
  - CONTUSION [None]
  - FEELING ABNORMAL [None]
  - PAIN IN EXTREMITY [None]
  - PANIC REACTION [None]
  - RIB FRACTURE [None]
  - ROAD TRAFFIC ACCIDENT [None]
  - SOMNAMBULISM [None]
